FAERS Safety Report 17631586 (Version 1)
Quarter: 2020Q2

REPORT INFORMATION
  Report Type: Spontaneous
  Country: US (occurrence: US)
  Receive Date: 20200406
  Receipt Date: 20200406
  Transmission Date: 20200713
  Serious: Yes (Other)
  Sender: FDA-Public Use
  Company Number: US-JNJFOC-20200345163

PATIENT
  Age: 68 Year
  Sex: Male

DRUGS (1)
  1. INVOKANA [Suspect]
     Active Substance: CANAGLIFLOZIN
     Indication: PRODUCT USED FOR UNKNOWN INDICATION
     Route: 048

REACTIONS (4)
  - Neuropathic arthropathy [Unknown]
  - Toe amputation [Unknown]
  - Gangrene [Unknown]
  - Skin ulcer [Unknown]

NARRATIVE: CASE EVENT DATE: 20170901
